FAERS Safety Report 15128870 (Version 1)
Quarter: 2018Q3

REPORT INFORMATION
  Report Type: Spontaneous
  Country: CN (occurrence: CN)
  Receive Date: 20180711
  Receipt Date: 20180711
  Transmission Date: 20181010
  Serious: Yes (Other)
  Sender: FDA-Public Use
  Company Number: CN-BAXTER-2018BAX018817

PATIENT
  Age: 27 Year
  Sex: Female
  Weight: 40 kg

DRUGS (4)
  1. 0.9% SODIUM CHLORIDE INJECTION [Suspect]
     Active Substance: SODIUM CHLORIDE
     Dosage: COMPOUNDED WITH YINUOSHU
     Route: 041
     Dates: start: 20180512, end: 20180516
  2. PIPERACILLIN SODIUM AND SULBACTAM SODIUM INJECTION [Suspect]
     Active Substance: PIPERACILLIN SODIUM\SULBACTAM SODIUM
     Indication: LUNG INFECTION
     Dosage: PIPERACILLIN SODIUM AND SULBACTAM SODIUM (4:1); IN 100 ML OF SODIUM CHLORIDE
     Route: 041
     Dates: start: 20180512, end: 20180516
  3. 0.9% SODIUM CHLORIDE INJECTION [Suspect]
     Active Substance: SODIUM CHLORIDE
     Indication: LUNG INFECTION
     Dosage: COMPOUNDED WITH PIPERACILLIN SODIUM AND SULBACTAM SODIUM
     Route: 041
     Dates: start: 20180512, end: 20180516
  4. YINUOSHU [Suspect]
     Active Substance: AMBROXOL HYDROCHLORIDE
     Indication: LUNG INFECTION
     Dosage: (AMBROXOL HYDROCHLORIDE) IN 100 ML OF SODIUM CHLORIDE
     Route: 041
     Dates: start: 20180512, end: 20180516

REACTIONS (1)
  - Hypersensitivity [Recovering/Resolving]

NARRATIVE: CASE EVENT DATE: 20180516
